FAERS Safety Report 5200470-5 (Version None)
Quarter: 2007Q1

REPORT INFORMATION
  Report Type: 
  Country: None (occurrence: None)
  Receive Date: 20070105
  Receipt Date: 20070103
  Transmission Date: 20070707
  Serious: Yes (Death)
  Sender: FDA-Public Use
  Company Number: US-MERCK-0701USA00458

PATIENT
  Sex: Female

DRUGS (1)
  1. CANCIDAS [Suspect]
     Indication: CEREBRAL FUNGAL INFECTION
     Route: 042

REACTIONS (1)
  - DEATH [None]
